FAERS Safety Report 4749026-9 (Version None)
Quarter: 2005Q3

REPORT INFORMATION
  Report Type: 
  Country: None (occurrence: None)
  Receive Date: 20050812
  Receipt Date: 20050627
  Transmission Date: 20060218
  Serious: No
  Sender: FDA-Public Use
  Company Number: 392727

PATIENT
  Age: 24 Year
  Sex: Female
  Weight: 65.3 kg

DRUGS (2)
  1. PEGASYS [Suspect]
     Indication: HEPATITIS C VIRUS
     Dosage: 180 MCG 1 PER WEEK SUBCUTANEOUS
     Route: 058
     Dates: start: 20041013
  2. COPEGUS [Concomitant]

REACTIONS (1)
  - HYPERTHYROIDISM [None]
